FAERS Safety Report 23460854 (Version 1)
Quarter: 2024Q1

REPORT INFORMATION
  Report Type: Spontaneous
  Country: US (occurrence: US)
  Receive Date: 20240131
  Receipt Date: 20240131
  Transmission Date: 20240410
  Serious: No
  Sender: FDA-Public Use
  Company Number: US-AMNEAL PHARMACEUTICALS-2023-AMRX-00923

PATIENT
  Age: 36 Year
  Sex: Female
  Weight: 72.562 kg

DRUGS (6)
  1. ELURYNG [Interacting]
     Active Substance: ETHINYL ESTRADIOL\ETONOGESTREL
     Indication: Product used for unknown indication
     Dosage: UNK
     Route: 067
     Dates: start: 20230303
  2. AUGMENTIN [Interacting]
     Active Substance: AMOXICILLIN\CLAVULANATE POTASSIUM
     Indication: Product used for unknown indication
     Dosage: 875 MILLIGRAM
     Route: 048
     Dates: start: 20230310, end: 20230317
  3. ALBUTEROL [Concomitant]
     Active Substance: ALBUTEROL
     Indication: Product used for unknown indication
     Dosage: UNK
     Route: 045
  4. BECLOMETHASONE DIPROPIONATE\LEVALBUTEROL SULFATE [Concomitant]
     Active Substance: BECLOMETHASONE DIPROPIONATE\LEVALBUTEROL SULFATE
     Indication: Product used for unknown indication
     Dosage: UNK
     Route: 045
  5. ZYRTEC [Concomitant]
     Active Substance: CETIRIZINE HYDROCHLORIDE
     Indication: Product used for unknown indication
     Dosage: UNK, QD
     Route: 048
  6. PREDNISOLONE [Concomitant]
     Active Substance: PREDNISOLONE
     Indication: Product used for unknown indication
     Dosage: 20 MILLIGRAM, QD
     Route: 048

REACTIONS (4)
  - Sensitive skin [Recovered/Resolved]
  - Vulvovaginal discomfort [Recovered/Resolved]
  - Pruritus [Recovered/Resolved]
  - Drug interaction [Unknown]

NARRATIVE: CASE EVENT DATE: 20230313
